FAERS Safety Report 9462022 (Version 1)
Quarter: 2013Q3

REPORT INFORMATION
  Report Type: Spontaneous
  Country: IT (occurrence: IT)
  Receive Date: 20130816
  Receipt Date: 20130816
  Transmission Date: 20140515
  Serious: Yes (Hospitalization)
  Sender: FDA-Public Use
  Company Number: IT-SANOFI-AVENTIS-2013SA080024

PATIENT
  Age: 72 Year
  Sex: Male

DRUGS (4)
  1. PLAVIX [Suspect]
     Indication: PROPHYLAXIS
     Route: 048
     Dates: start: 20130301, end: 20130531
  2. CARDIOASPIRIN [Suspect]
     Indication: PROPHYLAXIS
     Route: 048
     Dates: start: 20130301, end: 20130531
  3. OMNIC [Concomitant]
     Route: 048
  4. PRAVASELECT [Concomitant]
     Route: 048
     Dates: start: 20121001, end: 20130430

REACTIONS (1)
  - Hepatitis cholestatic [Recovered/Resolved]
